FAERS Safety Report 8573458 (Version 3)
Quarter: 2012Q4

REPORT INFORMATION
  Report Type: Spontaneous
  Country: US (occurrence: None)
  Receive Date: 20120514
  Receipt Date: 20121009
  Transmission Date: 20130627
  Serious: Yes (Life-Threatening, Hospitalization, Other)
  Sender: FDA-Public Use
  Company Number: ADR-2012-00857

PATIENT
  Sex: Male

DRUGS (2)
  1. LIORESAL [Suspect]
     Indication: MUSCLE SPASTICITY
     Dosage: SEE B5
  2. LIORESAL [Suspect]
     Indication: SPASTIC PARAPARESIS
     Dosage: SEE B5

REACTIONS (9)
  - Suicide attempt [None]
  - Drug ineffective [None]
  - Feeling abnormal [None]
  - Pain in extremity [None]
  - Vomiting [None]
  - Pneumonia [None]
  - Intentional overdose [None]
  - Muscle spasticity [None]
  - Pain in extremity [None]
